FAERS Safety Report 25659084 (Version 1)
Quarter: 2025Q3

REPORT INFORMATION
  Report Type: Spontaneous
  Country: AU (occurrence: AU)
  Receive Date: 20250808
  Receipt Date: 20250808
  Transmission Date: 20251021
  Serious: Yes (Other)
  Sender: ACCORD
  Company Number: None

PATIENT

DRUGS (3)
  1. LEVOTHYROXINE [Suspect]
     Active Substance: LEVOTHYROXINE
     Indication: Product used for unknown indication
  2. METFORMIN HYDROCHLORIDE [Suspect]
     Active Substance: METFORMIN HYDROCHLORIDE
     Indication: Product used for unknown indication
  3. MICARDIS HCT [Suspect]
     Active Substance: HYDROCHLOROTHIAZIDE\TELMISARTAN
     Indication: Product used for unknown indication

REACTIONS (22)
  - Emotional distress [Unknown]
  - Arrhythmia [Unknown]
  - Bronchospasm paradoxical [Unknown]
  - Chest discomfort [Unknown]
  - Decreased appetite [Unknown]
  - Diarrhoea [Unknown]
  - Dysgeusia [Unknown]
  - Dysphonia [Unknown]
  - Dyspnoea [Unknown]
  - Fatigue [Unknown]
  - Heart rate increased [Unknown]
  - Hypopnoea [Unknown]
  - Loss of personal independence in daily activities [Unknown]
  - Lung disorder [Unknown]
  - Malaise [Unknown]
  - Muscle spasms [Unknown]
  - Nausea [Unknown]
  - Pallor [Unknown]
  - Poor quality sleep [Unknown]
  - Pulmonary embolism [Unknown]
  - Retching [Unknown]
  - Vomiting [Unknown]
